FAERS Safety Report 7427087-6 (Version None)
Quarter: 2011Q2

REPORT INFORMATION
  Report Type: 
  Country: None (occurrence: None)
  Receive Date: 20110420
  Receipt Date: 20100116
  Transmission Date: 20111010
  Serious: Yes (Death, Other)
  Sender: FDA-Public Use
  Company Number: US-BAYER-201011560NA

PATIENT
  Age: 68 Year
  Sex: Male
  Weight: 81.633 kg

DRUGS (16)
  1. EPINEPHRINE [Concomitant]
     Dosage: UNK
     Route: 042
     Dates: start: 20021213
  2. NORVASC [Concomitant]
     Dosage: 5 MG, QD
     Route: 048
  3. LIPITOR [Concomitant]
     Dosage: 40 MG, QD
     Route: 048
  4. VERSED [Concomitant]
     Dosage: UNK
     Route: 042
     Dates: start: 20021213
  5. ANCEF [Concomitant]
     Dosage: 1 G, UNK
     Route: 042
     Dates: start: 20021213
  6. NITROGLYCERIN [Concomitant]
     Dosage: TITRATED DRIP
     Route: 042
     Dates: start: 20021213
  7. GENTAMICIN [Concomitant]
     Dosage: UNK
     Route: 042
     Dates: start: 20021213
  8. TRASYLOL [Suspect]
     Indication: CORONARY ARTERY BYPASS
     Dates: start: 20021213
  9. BETAPACE [Concomitant]
     Dosage: 80 MG, BID
     Route: 048
  10. ACETYLSALICYLIC ACID SRT [Concomitant]
     Dosage: 325 MG, QD
     Route: 048
  11. NITROGLYCERIN [Concomitant]
     Dosage: UNK UNK, PRN
     Route: 060
  12. PROTAMINE SULFATE [Concomitant]
     Dosage: UNK
     Dates: start: 20021213
  13. PROPOFOL [Concomitant]
     Dosage: TITRATED DRIP
     Route: 042
     Dates: start: 20021213
  14. IMDUR [Concomitant]
     Dosage: 120 MG, QD
     Route: 048
  15. PLAVIX [Concomitant]
     Dosage: UNK
     Route: 048
  16. HEPARIN [Concomitant]
     Dosage: UNK
     Dates: start: 20021213

REACTIONS (15)
  - RENAL INJURY [None]
  - DEATH [None]
  - ORGAN FAILURE [None]
  - RENAL FAILURE [None]
  - PAIN [None]
  - UNEVALUABLE EVENT [None]
  - INJURY [None]
  - MYOCARDIAL INFARCTION [None]
  - CARDIAC DISORDER [None]
  - ANXIETY [None]
  - ANHEDONIA [None]
  - CEREBROVASCULAR ACCIDENT [None]
  - FEAR [None]
  - DEPRESSION [None]
  - RENAL IMPAIRMENT [None]
